FAERS Safety Report 24371491 (Version 1)
Quarter: 2024Q3

REPORT INFORMATION
  Report Type: Spontaneous
  Country: GB (occurrence: GB)
  Receive Date: 20240927
  Receipt Date: 20240927
  Transmission Date: 20241016
  Serious: Yes (Hospitalization, Other)
  Sender: MSN LABORATORIES
  Company Number: GB-MSNLABS-2024MSNLIT02119

PATIENT

DRUGS (2)
  1. DEFERASIROX [Suspect]
     Active Substance: DEFERASIROX
     Indication: Overchelation
     Dosage: 1080 MG ONCE A DAY (O.D)
     Route: 065
  2. DEFERIPRONE [Suspect]
     Active Substance: DEFERIPRONE
     Indication: Overchelation
     Dosage: 1500 MG ONCE A DAY (O.D)
     Route: 065

REACTIONS (5)
  - Dyspnoea [Recovered/Resolved]
  - Cardiomyopathy [Recovered/Resolved]
  - Left ventricular dysfunction [Recovered/Resolved]
  - Oedema peripheral [Recovered/Resolved]
  - Treatment noncompliance [Unknown]
